FAERS Safety Report 5542903-0 (Version None)
Quarter: 2007Q4

REPORT INFORMATION
  Report Type: 
  Country: None (occurrence: None)
  Receive Date: 20071210
  Receipt Date: 20071128
  Transmission Date: 20080405
  Serious: Yes (Other)
  Sender: FDA-Public Use
  Company Number: US-PFIZER INC-2007100656

PATIENT
  Sex: Female
  Weight: 84 kg

DRUGS (1)
  1. VIAGRA [Suspect]
     Indication: PROSTATIC OPERATION

REACTIONS (1)
  - RASH PAPULAR [None]
